FAERS Safety Report 10396741 (Version 2)
Quarter: 2014Q3

REPORT INFORMATION
  Report Type: Spontaneous
  Country: CN (occurrence: CN)
  Receive Date: 20140820
  Receipt Date: 20140828
  Transmission Date: 20150326
  Serious: Yes (Hospitalization)
  Sender: FDA-Public Use
  Company Number: CN-GLAXOSMITHKLINE-B1025212A

PATIENT
  Age: 63 Year
  Sex: Male

DRUGS (2)
  1. EPIVIR [Suspect]
     Active Substance: LAMIVUDINE
     Indication: HEPATITIS B
     Dosage: 100MG PER DAY
     Route: 065
     Dates: start: 2007
  2. ADEFOVIR DIPIVOXIL. [Suspect]
     Active Substance: ADEFOVIR DIPIVOXIL
     Indication: HEPATITIS B
     Dosage: 10MG PER DAY
     Route: 065
     Dates: start: 2009

REACTIONS (13)
  - Osteoporosis [Recovered/Resolved]
  - Spider naevus [Unknown]
  - Joint effusion [Unknown]
  - Back pain [Unknown]
  - Light chain analysis increased [Unknown]
  - Urine phosphorus increased [Unknown]
  - Fanconi syndrome [Recovering/Resolving]
  - Renal failure chronic [Unknown]
  - Urine calcium increased [Unknown]
  - Muscular weakness [Recovering/Resolving]
  - Viral mutation identified [Unknown]
  - Intervertebral disc protrusion [Unknown]
  - Blood parathyroid hormone decreased [Unknown]
